FAERS Safety Report 23767928 (Version 1)
Quarter: 2024Q2

REPORT INFORMATION
  Report Type: Spontaneous
  Country: US (occurrence: US)
  Receive Date: 20240422
  Receipt Date: 20240422
  Transmission Date: 20240716
  Serious: Yes (Hospitalization, Other)
  Sender: FDA-Public Use
  Company Number: US-MankindUS-000163

PATIENT
  Age: 38 Year
  Sex: Female

DRUGS (3)
  1. LIDOCAINE HYDROCHLORIDE [Suspect]
     Active Substance: LIDOCAINE HYDROCHLORIDE
     Indication: Local anaesthesia
     Dosage: E 0.5%, AUTO BOLUS?15ML EVERY 2 HOURS, AND DEMAND BOLUS 10ML EVERY 30 MINUTES.
  2. EPINEPHRINE [Concomitant]
     Active Substance: EPINEPHRINE
     Dosage: 0.08 MICROG/KG/MIN
  3. NITRIC OXIDE [Concomitant]
     Active Substance: NITRIC OXIDE
     Dosage: 20PPM INHALED

REACTIONS (2)
  - Local anaesthetic systemic toxicity [Recovered/Resolved]
  - Hemiparesis [Recovered/Resolved]
